FAERS Safety Report 5954334-X (Version None)
Quarter: 2008Q4

REPORT INFORMATION
  Report Type: 
  Country: None (occurrence: None)
  Receive Date: 20081117
  Receipt Date: 20080218
  Transmission Date: 20090506
  Serious: No
  Sender: FDA-Public Use
  Company Number: US-AMGEN-KDL251364

PATIENT
  Sex: Female

DRUGS (4)
  1. ENBREL [Suspect]
     Indication: RHEUMATOID ARTHRITIS
     Route: 058
     Dates: start: 20060701
  2. METHOTREXATE [Concomitant]
     Dates: start: 20010101
  3. HYDROXYCHLOROQUINE SULFATE [Concomitant]
     Dates: start: 20010101
  4. ACTONEL [Concomitant]

REACTIONS (1)
  - NASOPHARYNGITIS [None]
